FAERS Safety Report 6609150-2 (Version None)
Quarter: 2010Q1

REPORT INFORMATION
  Report Type: 
  Country: None (occurrence: None)
  Receive Date: 20100226
  Receipt Date: 20100226
  Transmission Date: 20100710
  Serious: Yes (Hospitalization)
  Sender: FDA-Public Use
  Company Number: None

PATIENT
  Age: 28 Year
  Sex: Female
  Weight: 77.1115 kg

DRUGS (1)
  1. HYDROXYCHLOROQUINE SULFATE [Suspect]
     Indication: AUTOIMMUNE DISORDER
     Dosage: 2 TABLETS DAILY PO
     Route: 048
     Dates: start: 20090701, end: 20100204

REACTIONS (1)
  - ANAPHYLACTIC REACTION [None]
